FAERS Safety Report 4368481-X (Version None)
Quarter: 2004Q2

REPORT INFORMATION
  Report Type: 
  Country: None (occurrence: None)
  Receive Date: 20040528
  Receipt Date: 20040518
  Transmission Date: 20050107
  Serious: Yes (Other)
  Sender: FDA-Public Use
  Company Number: HQWYE972018MAY04

PATIENT
  Age: 62 Year
  Sex: Male

DRUGS (2)
  1. CORDARONE [Suspect]
     Indication: ATRIAL FIBRILLATION
     Dosage: 200 MG 2X PER 1 DAY; ORAL
     Route: 048
     Dates: start: 20000301, end: 20040201
  2. WARFARIN SODIUM [Concomitant]

REACTIONS (8)
  - ATRIAL FIBRILLATION [None]
  - DYSPNOEA [None]
  - FEELING ABNORMAL [None]
  - IMPAIRED WORK ABILITY [None]
  - OEDEMA [None]
  - OEDEMA PERIPHERAL [None]
  - THYROIDITIS [None]
  - TREMOR [None]
